FAERS Safety Report 17251421 (Version 2)
Quarter: 2020Q1

REPORT INFORMATION
  Report Type: Report from Study
  Country: DE (occurrence: DE)
  Receive Date: 20200109
  Receipt Date: 20200123
  Transmission Date: 20200409
  Serious: Yes (Hospitalization, Other)
  Sender: FDA-Public Use
  Company Number: DE-ACTELION-A-CH2019-192622

PATIENT
  Age: 51 Year
  Sex: Female
  Weight: 94 kg

DRUGS (25)
  1. ADCIRCA [Suspect]
     Active Substance: TADALAFIL
     Indication: PULMONARY ARTERIAL HYPERTENSION
     Dosage: 40 MG, QD
     Route: 048
     Dates: start: 201607, end: 20190618
  2. REMODULIN [Concomitant]
     Active Substance: TREPROSTINIL
     Indication: PULMONARY ARTERIAL HYPERTENSION
     Dosage: 61 NG/KG, PER MIN
     Dates: start: 20190619, end: 20190731
  3. REMODULIN [Concomitant]
     Active Substance: TREPROSTINIL
     Dosage: 60.8 NG/KG, PER MIN
     Dates: start: 20190911, end: 20191002
  4. ADENURIC [Concomitant]
     Active Substance: FEBUXOSTAT
     Indication: GOUT
     Dosage: UNK
     Route: 048
     Dates: start: 2016
  5. ORFILLONG [Concomitant]
     Indication: EPILEPSY
     Dosage: UNK
     Route: 048
     Dates: start: 1996
  6. REMODULIN [Concomitant]
     Active Substance: TREPROSTINIL
     Dosage: 61.2 NG/KG, PER MIN
     Dates: start: 20191002, end: 20191025
  7. KALINOR [Concomitant]
     Indication: PROPHYLAXIS
     Dosage: UNK
     Route: 048
     Dates: start: 2016
  8. TORASEMIDE [Concomitant]
     Active Substance: TORSEMIDE
     Indication: PULMONARY ARTERIAL HYPERTENSION
     Dosage: UNK
     Route: 048
     Dates: start: 2016
  9. RIVAROXABAN [Concomitant]
     Active Substance: RIVAROXABAN
     Indication: PULMONARY EMBOLISM
     Dosage: UNK
     Route: 048
     Dates: start: 2016, end: 20190617
  10. DEKRISTOL [Concomitant]
     Active Substance: CHOLECALCIFEROL
     Indication: OSTEOPOROSIS PROPHYLAXIS
     Dosage: UNK
     Route: 048
     Dates: start: 2016
  11. ADENURIC [Concomitant]
     Active Substance: FEBUXOSTAT
     Indication: HYPERHOMOCYSTEINAEMIA
  12. OPSUMIT [Suspect]
     Active Substance: MACITENTAN
     Indication: PULMONARY ARTERIAL HYPERTENSION
     Dosage: 10 MG, QD
     Route: 048
     Dates: start: 201605
  13. REMODULIN [Concomitant]
     Active Substance: TREPROSTINIL
     Dosage: 57 NG/KG, PER MIN
     Dates: start: 20170329, end: 20190619
  14. REMODULIN [Concomitant]
     Active Substance: TREPROSTINIL
     Dosage: 62 NG/KG, PER MIN
     Route: 042
     Dates: start: 20190731, end: 20190819
  15. PANTOPRAZOLE [Concomitant]
     Active Substance: PANTOPRAZOLE
     Indication: PROPHYLAXIS
     Dosage: UNK
     Route: 048
     Dates: start: 2016
  16. MAGNESIUM [Concomitant]
     Active Substance: MAGNESIUM
     Indication: PROPHYLAXIS
     Dosage: UNK
     Route: 048
     Dates: start: 201810
  17. SPIRONOLACTONE. [Concomitant]
     Active Substance: SPIRONOLACTONE
     Indication: PULMONARY ARTERIAL HYPERTENSION
     Dosage: UNK
     Route: 048
     Dates: start: 2016
  18. FERRO SANOL [Concomitant]
     Active Substance: FERROUS GLYCINE SULFATE
     Indication: IRON DEFICIENCY
     Dosage: UNK
     Route: 048
     Dates: start: 2017
  19. REMODULIN [Concomitant]
     Active Substance: TREPROSTINIL
     Dosage: 64.6 NG/KG, PER MIN
     Dates: start: 20191119, end: 20191211
  20. REMODULIN [Concomitant]
     Active Substance: TREPROSTINIL
     Dosage: 62.5 NG/KG, PER MIN
     Dates: start: 20191025, end: 20191119
  21. REMODULIN [Concomitant]
     Active Substance: TREPROSTINIL
     Dosage: 63 NG/KG, PER MIN
     Dates: start: 20191211
  22. NOVOTHYRAL [Concomitant]
     Active Substance: LEVOTHYROXINE SODIUM\LIOTHYRONINE SODIUM
     Indication: HYPOTHYROIDISM
     Dosage: UNK
     Route: 048
     Dates: start: 2006
  23. REMODULIN [Concomitant]
     Active Substance: TREPROSTINIL
     Dosage: 67.3 NG/KG, PER MIN
     Dates: start: 20190819, end: 20190911
  24. PHENPROCOUMON [Concomitant]
     Active Substance: PHENPROCOUMON
     Indication: PULMONARY EMBOLISM
     Dosage: UNK
     Route: 048
     Dates: start: 20190617
  25. VITAMIN B [Concomitant]
     Active Substance: VITAMIN B
     Indication: PROPHYLAXIS
     Dosage: UNK
     Route: 048
     Dates: start: 201810

REACTIONS (9)
  - Condition aggravated [Recovered/Resolved]
  - Disease progression [Recovered/Resolved]
  - Weight increased [Recovered/Resolved]
  - Right ventricular failure [Recovered/Resolved]
  - Contusion [Recovering/Resolving]
  - Pulmonary arterial hypertension [Recovered/Resolved]
  - Syncope [Recovered/Resolved]
  - Oedema peripheral [Recovered/Resolved]
  - Fall [Unknown]

NARRATIVE: CASE EVENT DATE: 20190617
